FAERS Safety Report 19975643 (Version 8)
Quarter: 2023Q1

REPORT INFORMATION
  Report Type: Report from Study
  Country: US (occurrence: US)
  Receive Date: 20211021
  Receipt Date: 20230131
  Transmission Date: 20230418
  Serious: No
  Sender: FDA-Public Use
  Company Number: US-NOVARTISTESTPH-NVSC2021US239873

PATIENT
  Age: 0 Year
  Sex: Female

DRUGS (2)
  1. ZOLGENSMA [Suspect]
     Active Substance: ONASEMNOGENE ABEPARVOVEC-XIOI
     Indication: Spinal muscular atrophy
     Dosage: 24.8 ML, ONCE/SINGLE
     Route: 042
     Dates: start: 20211015, end: 20211015
  2. PREDNISOLONE [Concomitant]
     Active Substance: PREDNISOLONE
     Indication: Product used for unknown indication
     Dosage: 3.6 MG
     Route: 065
     Dates: start: 20211014

REACTIONS (6)
  - Infantile spitting up [Recovering/Resolving]
  - Abdominal discomfort [Recovering/Resolving]
  - COVID-19 [Recovered/Resolved]
  - Rhinorrhoea [Recovered/Resolved]
  - Areflexia [Not Recovered/Not Resolved]
  - Hyporeflexia [Not Recovered/Not Resolved]

NARRATIVE: CASE EVENT DATE: 20211028
